FAERS Safety Report 24765255 (Version 1)
Quarter: 2024Q4

REPORT INFORMATION
  Report Type: Spontaneous
  Country: US (occurrence: US)
  Receive Date: 20241223
  Receipt Date: 20241223
  Transmission Date: 20250115
  Serious: No
  Sender: CSL BEHRING
  Company Number: US-BEH-2024187799

PATIENT
  Age: 11 Year
  Sex: Male

DRUGS (3)
  1. PRIVIGEN [Suspect]
     Active Substance: HUMAN IMMUNOGLOBULIN G
     Indication: Product used for unknown indication
     Route: 065
  2. SKYTROFA [Suspect]
     Active Substance: LONAPEGSOMATROPIN-TCGD
     Indication: Hypopituitarism
     Dosage: 9.1 ML, QW
     Route: 058
     Dates: start: 202304
  3. SKYTROFA [Suspect]
     Active Substance: LONAPEGSOMATROPIN-TCGD
     Dosage: 7.6 ML, QW
     Route: 058

REACTIONS (1)
  - Headache [Recovered/Resolved]
